FAERS Safety Report 8785179 (Version 1)
Quarter: 2012Q4

REPORT INFORMATION
  Report Type: Report from Study
  Country: US (occurrence: US)
  Receive Date: 20120914
  Receipt Date: 20120914
  Transmission Date: 20130627
  Serious: Yes (Other)
  Sender: FDA-Public Use
  Company Number: US-ABBOTT-12P-163-0977203-00

PATIENT
  Sex: Male
  Weight: 150.27 kg

DRUGS (9)
  1. HUMIRA [Suspect]
     Indication: CROHN^S DISEASE
     Dates: start: 20090515
  2. PENTASA [Concomitant]
     Indication: CROHN^S DISEASE
  3. MORPHINE [Concomitant]
     Indication: INTERVERTEBRAL DISC PROTRUSION
  4. NORCO [Concomitant]
     Indication: INTERVERTEBRAL DISC PROTRUSION
  5. NEXIUM [Concomitant]
     Indication: GASTROOESOPHAGEAL REFLUX DISEASE
  6. PROPANOLOL [Concomitant]
     Indication: PRODUCT USED FOR UNKNOWN INDICATION
  7. HYDROCHLOROTHIAZIDE [Concomitant]
     Indication: BLOOD PRESSURE
  8. LANTUS [Concomitant]
     Indication: DIABETES MELLITUS
  9. CLONAZEPAMUM [Concomitant]
     Indication: RESTLESS LEGS SYNDROME

REACTIONS (4)
  - Ingrowing nail [Recovered/Resolved]
  - Fatigue [Not Recovered/Not Resolved]
  - Localised infection [Recovered/Resolved]
  - Crohn^s disease [Recovered/Resolved]
